FAERS Safety Report 19415873 (Version 3)
Quarter: 2021Q3

REPORT INFORMATION
  Report Type: Spontaneous
  Country: CA (occurrence: CA)
  Receive Date: 20210614
  Receipt Date: 20210823
  Transmission Date: 20211014
  Serious: Yes (Other)
  Sender: FDA-Public Use
  Company Number: CA-BAUSCH-BL-2021-020603

PATIENT
  Age: 20 Year
  Sex: Female

DRUGS (18)
  1. DEXAMETHASONE. [Suspect]
     Active Substance: DEXAMETHASONE
     Indication: HAEMOPHAGOCYTIC LYMPHOHISTIOCYTOSIS
     Dosage: UNTIL DAY 40
     Route: 065
  2. RUXOLITINIB [Suspect]
     Active Substance: RUXOLITINIB
     Route: 065
  3. AZATHIOPRINE. [Concomitant]
     Active Substance: AZATHIOPRINE
     Indication: SYSTEMIC LUPUS ERYTHEMATOSUS
  4. METHOTREXATE. [Concomitant]
     Active Substance: METHOTREXATE
     Indication: NEUROLOGICAL SYMPTOM
     Dosage: DAYS ?5 AND ?1
     Route: 037
  5. RUXOLITINIB [Suspect]
     Active Substance: RUXOLITINIB
     Dosage: HELD FOR 12 DAYS
     Route: 065
  6. ETOPOSIDE. [Suspect]
     Active Substance: ETOPOSIDE
     Indication: HAEMOPHAGOCYTIC LYMPHOHISTIOCYTOSIS
     Dosage: ON DAYS ?26 AND ?23
     Route: 065
  7. INTRAVENOUS IMMUNOGLOBULIN [Suspect]
     Active Substance: HUMAN IMMUNOGLOBULIN G
     Indication: HAEMOPHAGOCYTIC LYMPHOHISTIOCYTOSIS
     Route: 065
  8. PREDNISONE. [Suspect]
     Active Substance: PREDNISONE
     Indication: HAEMOPHAGOCYTIC LYMPHOHISTIOCYTOSIS
     Route: 065
  9. RUXOLITINIB [Suspect]
     Active Substance: RUXOLITINIB
     Indication: HAEMOPHAGOCYTIC LYMPHOHISTIOCYTOSIS
     Route: 065
  10. PREDNISONE. [Suspect]
     Active Substance: PREDNISONE
     Dosage: LESS THAN 7.5 MG BY DAY 75
     Route: 065
  11. AMPHOTERICIN B. [Concomitant]
     Active Substance: AMPHOTERICIN B
     Indication: BRONCHOPULMONARY ASPERGILLOSIS
  12. VORICONAZOLE. [Concomitant]
     Active Substance: VORICONAZOLE
     Indication: BRONCHOPULMONARY ASPERGILLOSIS
  13. RUXOLITINIB [Suspect]
     Active Substance: RUXOLITINIB
     Route: 065
  14. RUXOLITINIB [Suspect]
     Active Substance: RUXOLITINIB
     Route: 065
  15. ETOPOSIDE. [Suspect]
     Active Substance: ETOPOSIDE
     Dosage: ON DAY 20
     Route: 065
  16. METHYLPREDNISOLONE. [Concomitant]
     Active Substance: METHYLPREDNISOLONE
     Indication: PRODUCT USED FOR UNKNOWN INDICATION
     Dosage: DAYS ?7 AND ?6
     Route: 065
  17. RUXOLITINIB [Suspect]
     Active Substance: RUXOLITINIB
     Route: 065
  18. RUXOLITINIB [Suspect]
     Active Substance: RUXOLITINIB
     Route: 065

REACTIONS (7)
  - Urinary tract infection bacterial [Unknown]
  - Intensive care unit acquired weakness [Unknown]
  - Staphylococcal bacteraemia [Unknown]
  - Cytomegalovirus infection reactivation [Unknown]
  - Klebsiella infection [Unknown]
  - Lung abscess [Unknown]
  - Cytopenia [Unknown]
